FAERS Safety Report 6429844-1 (Version None)
Quarter: 2009Q4

REPORT INFORMATION
  Report Type: 
  Country: None (occurrence: None)
  Receive Date: 20091106
  Receipt Date: 20091027
  Transmission Date: 20100525
  Serious: Yes (Hospitalization)
  Sender: FDA-Public Use
  Company Number: FR-WYE-H08677309

PATIENT
  Sex: Male

DRUGS (7)
  1. INIPOMP [Suspect]
     Route: 048
     Dates: start: 20081221
  2. CELLCEPT [Suspect]
     Route: 048
     Dates: start: 20081221
  3. AVLOCARDYL [Suspect]
     Indication: HYPERTENSION
     Dosage: 1 DOSAGE FORM
  4. SOLUPRED [Suspect]
     Dates: start: 20081221
  5. BACTRIM [Suspect]
     Dosage: UNKNOWN
     Route: 048
  6. NEORAL [Suspect]
     Dosage: UNKNOWN
     Route: 048
     Dates: start: 20081221
  7. RIMIFON [Suspect]
     Route: 048
     Dates: start: 20081221

REACTIONS (3)
  - ARTHRITIS [None]
  - HYPERURICAEMIA [None]
  - JOINT EFFUSION [None]
